FAERS Safety Report 16882615 (Version 1)
Quarter: 2019Q4

REPORT INFORMATION
  Report Type: Spontaneous
  Country: CA (occurrence: CA)
  Receive Date: 20191003
  Receipt Date: 20191003
  Transmission Date: 20200122
  Serious: Yes (Disabling, Other)
  Sender: FDA-Public Use
  Company Number: CA-AUROBINDO-AUR-APL-2019-063762

PATIENT
  Sex: Male
  Weight: 72 kg

DRUGS (5)
  1. CIPROFLOXACIN FILM-COATED TABLETS [Suspect]
     Active Substance: CIPROFLOXACIN
     Indication: PROSTATITIS
  2. MELATONIN [Concomitant]
     Active Substance: MELATONIN
     Indication: PRODUCT USED FOR UNKNOWN INDICATION
     Dosage: 500.0 MILLIGRAM, TWO TIMES A DAY
     Route: 048
  3. ZOPICLONE [Concomitant]
     Active Substance: ZOPICLONE
     Indication: PRODUCT USED FOR UNKNOWN INDICATION
     Dosage: UNK
     Route: 065
  4. VALERIAN [Concomitant]
     Active Substance: VALERIAN
     Indication: PRODUCT USED FOR UNKNOWN INDICATION
     Dosage: UNK
     Route: 065
  5. CIPROFLOXACIN FILM-COATED TABLETS [Suspect]
     Active Substance: CIPROFLOXACIN
     Indication: URINARY TRACT INFECTION
     Dosage: UNK, TWO TIMES A DAY
     Route: 048

REACTIONS (27)
  - Disturbance in attention [Recovering/Resolving]
  - Panic attack [Recovering/Resolving]
  - Agitation [Recovering/Resolving]
  - Asthenia [Recovering/Resolving]
  - Cognitive disorder [Recovering/Resolving]
  - Muscular weakness [Recovering/Resolving]
  - Weight decreased [Recovering/Resolving]
  - Feeling abnormal [Recovering/Resolving]
  - Gait inability [Recovering/Resolving]
  - Paraesthesia [Recovering/Resolving]
  - Anxiety [Recovering/Resolving]
  - Confusional state [Recovering/Resolving]
  - Feeling cold [Recovering/Resolving]
  - Feeling hot [Recovering/Resolving]
  - Nausea [Recovering/Resolving]
  - Nightmare [Recovering/Resolving]
  - Amnesia [Recovering/Resolving]
  - Dizziness [Recovering/Resolving]
  - Emotional distress [Recovering/Resolving]
  - Condition aggravated [Recovering/Resolving]
  - Thirst [Recovering/Resolving]
  - Dysgraphia [Recovering/Resolving]
  - Fatigue [Recovering/Resolving]
  - Insomnia [Recovering/Resolving]
  - Pain in extremity [Recovering/Resolving]
  - Loss of consciousness [Recovering/Resolving]
  - Sensory loss [Recovering/Resolving]
